FAERS Safety Report 15499687 (Version 1)
Quarter: 2018Q4

REPORT INFORMATION
  Report Type: Spontaneous
  Country: US (occurrence: US)
  Receive Date: 20181015
  Receipt Date: 20181015
  Transmission Date: 20190205
  Serious: Yes (Other)
  Sender: FDA-Public Use
  Company Number: US-MYLANLABS-2018M1075489

PATIENT
  Age: 52 Year
  Sex: Female

DRUGS (1)
  1. BIVALIRUDIN. [Suspect]
     Active Substance: BIVALIRUDIN
     Indication: MEDICINAL LEECH APPLICATION
     Route: 023

REACTIONS (2)
  - Haemoglobin decreased [Unknown]
  - Off label use [Unknown]
